FAERS Safety Report 23123861 (Version 2)
Quarter: 2025Q4

REPORT INFORMATION
  Report Type: Spontaneous
  Country: US (occurrence: US)
  Receive Date: 20231030
  Receipt Date: 20251209
  Transmission Date: 20260117
  Serious: Yes (Other)
  Sender: COOPERSURGICAL
  Company Number: US-COOPERSURGICAL, INC.-US-2023CPS003388

PATIENT
  Age: 38 Year
  Sex: Female
  Weight: 75.283 kg

DRUGS (2)
  1. PARAGARD T 380A [Suspect]
     Active Substance: COPPER
     Indication: Contraception
     Dosage: UNK
     Route: 015
     Dates: start: 20160701, end: 20230613
  2. HYDROCHLOROTHIAZIDE [Concomitant]
     Active Substance: HYDROCHLOROTHIAZIDE
     Dosage: UNK
     Dates: start: 201301

REACTIONS (38)
  - Reproductive complication associated with device [Unknown]
  - Uterine leiomyoma [Unknown]
  - Surgery [Recovered/Resolved]
  - Device breakage [Recovered/Resolved]
  - Foreign body in reproductive tract [Recovered/Resolved]
  - Complication of device removal [Recovered/Resolved]
  - Embedded device [Recovered/Resolved]
  - Uterine perforation [Unknown]
  - Device dislocation [Recovered/Resolved]
  - Device material issue [Recovered/Resolved]
  - Dysarthria [Unknown]
  - Gait disturbance [Unknown]
  - Sciatica [Unknown]
  - Pain in extremity [Recovering/Resolving]
  - Urinary incontinence [Unknown]
  - Procedural pain [Recovered/Resolved]
  - Angiopathy [Recovering/Resolving]
  - Neurological symptom [Recovering/Resolving]
  - Depressed level of consciousness [Unknown]
  - Electrolyte imbalance [Unknown]
  - Groin pain [Recovering/Resolving]
  - Sensation of foreign body [Unknown]
  - Asthenia [Unknown]
  - Inflammation [Unknown]
  - Depression [Unknown]
  - Anxiety [Unknown]
  - Pollakiuria [Unknown]
  - Hypotension [Unknown]
  - Abdominal pain [Unknown]
  - Back pain [Unknown]
  - Device expulsion [Recovered/Resolved]
  - Pain [Unknown]
  - Unevaluable event [Unknown]
  - Abnormal uterine bleeding [Unknown]
  - Pelvic pain [Recovering/Resolving]
  - Vaginal discharge [Unknown]
  - Heavy menstrual bleeding [Unknown]
  - Intermenstrual bleeding [Unknown]

NARRATIVE: CASE EVENT DATE: 20170901
